FAERS Safety Report 5787273-8 (Version None)
Quarter: 2008Q2

REPORT INFORMATION
  Report Type: 
  Country: None (occurrence: None)
  Receive Date: 20080625
  Receipt Date: 20070918
  Transmission Date: 20081010
  Serious: No
  Sender: FDA-Public Use
  Company Number: US-ASTRAZENECA-2007UW21941

PATIENT
  Sex: Female

DRUGS (2)
  1. PULMICORT RESPULES [Suspect]
     Route: 055
  2. BROVANA [Suspect]
     Route: 055
     Dates: start: 20070101

REACTIONS (2)
  - DRUG ADMINISTRATION ERROR [None]
  - STOMATITIS [None]
